FAERS Safety Report 25857350 (Version 1)
Quarter: 2025Q3

REPORT INFORMATION
  Report Type: Report from Study
  Country: US (occurrence: US)
  Receive Date: 20250929
  Receipt Date: 20250929
  Transmission Date: 20251021
  Serious: Yes (Death, Hospitalization, Other)
  Sender: ACADIA PHARMACEUTICALS
  Company Number: US-ACADIA PHARMACEUTICALS INC.-ACA-2025-PIM-010632

PATIENT
  Sex: Male

DRUGS (11)
  1. NUPLAZID [Suspect]
     Active Substance: PIMAVANSERIN TARTRATE
     Indication: Hallucination
     Dosage: 34 MILLIGRAM, QD
     Route: 048
     Dates: start: 20221004
  2. VITAMIN B COMPLEX [Concomitant]
     Active Substance: CYANOCOBALAMIN\DEXPANTHENOL\NIACINAMIDE\PYRIDOXINE HYDROCHLORIDE\RIBOFLAVIN 5^-PHOSPHATE SODIUM\THIA
  3. VITAMIN B12 [Concomitant]
     Active Substance: CYANOCOBALAMIN
  4. VITAMIN E [Concomitant]
     Active Substance: .ALPHA.-TOCOPHEROL
  5. MELATONIN [Concomitant]
     Active Substance: MELATONIN
  6. NAMENDA [Concomitant]
     Active Substance: MEMANTINE HYDROCHLORIDE
  7. DEPAKOTE [Concomitant]
     Active Substance: DIVALPROEX SODIUM
  8. LOKELMA [SODIUM ZIRCONIUM CYCLOSILICATE HYDRATE] [Concomitant]
  9. EFFEXOR [Concomitant]
     Active Substance: VENLAFAXINE HYDROCHLORIDE
  10. PHOSLO [Concomitant]
     Active Substance: CALCIUM ACETATE
  11. MORNIFLUMATE [Concomitant]
     Active Substance: MORNIFLUMATE

REACTIONS (4)
  - Pneumonia [Fatal]
  - Renal failure [Fatal]
  - Chronic kidney disease [Recovered/Resolved]
  - Dementia [Recovered/Resolved]
